FAERS Safety Report 19656732 (Version 2)
Quarter: 2021Q3

REPORT INFORMATION
  Report Type: Spontaneous
  Country: US (occurrence: US)
  Receive Date: 20210804
  Receipt Date: 20210920
  Transmission Date: 20211014
  Serious: Yes (Other)
  Sender: FDA-Public Use
  Company Number: US-JNJFOC-20210758686

PATIENT
  Sex: Female

DRUGS (1)
  1. AVEENO PROTECT PLUS REFRESH SUNSCREEN BROAD SPECTRUM BODY SPF 60 [Suspect]
     Active Substance: AVOBENZONE\HOMOSALATE\OCTISALATE\OCTOCRYLENE
     Indication: PROPHYLAXIS AGAINST SOLAR RADIATION
     Route: 061

REACTIONS (2)
  - Skin cancer [Not Recovered/Not Resolved]
  - Hyperkeratosis [Not Recovered/Not Resolved]
